FAERS Safety Report 6688511-X (Version None)
Quarter: 2010Q2

REPORT INFORMATION
  Report Type: 
  Country: None (occurrence: None)
  Receive Date: 20100414
  Receipt Date: 20100405
  Transmission Date: 20101027
  Serious: Yes (Death)
  Sender: FDA-Public Use
  Company Number: 2010SP014032

PATIENT
  Age: 48 Year
  Sex: Male

DRUGS (6)
  1. MIRTAZAPINE [Suspect]
     Indication: DEPRESSION
     Dosage: 15 MG;QD; 22.5 MG;QD; 30 MG;QD
     Dates: start: 20100127, end: 20100205
  2. MIRTAZAPINE [Suspect]
     Indication: DEPRESSION
     Dosage: 15 MG;QD; 22.5 MG;QD; 30 MG;QD
     Dates: start: 20100206, end: 20100223
  3. MIRTAZAPINE [Suspect]
     Indication: DEPRESSION
     Dosage: 15 MG;QD; 22.5 MG;QD; 30 MG;QD
     Dates: start: 20100224, end: 20100301
  4. ZOLPIDEM TARTRATE [Concomitant]
  5. TRAZODONE HYDROCHLORIDE [Concomitant]
  6. TRAZODONE HYDROCHLORIDE [Concomitant]

REACTIONS (2)
  - COMPLETED SUICIDE [None]
  - INCORRECT DOSE ADMINISTERED [None]
